FAERS Safety Report 21047121 (Version 1)
Quarter: 2022Q3

REPORT INFORMATION
  Report Type: Spontaneous
  Country: SI (occurrence: SI)
  Receive Date: 20220706
  Receipt Date: 20220706
  Transmission Date: 20221027
  Serious: Yes (Other)
  Sender: FDA-Public Use
  Company Number: SI-002147023-NVSC2022SI139853

PATIENT
  Age: 34 Year
  Sex: Female

DRUGS (1)
  1. LETROZOLE [Suspect]
     Active Substance: LETROZOLE
     Indication: Breast cancer
     Dosage: 2.5 MILLIGRAM (2.5 MG)
     Route: 065
     Dates: start: 201707, end: 201908

REACTIONS (6)
  - Pelvic pain [Unknown]
  - Dyspnoea [Unknown]
  - Arthralgia [Unknown]
  - Breast cancer [Unknown]
  - Malignant neoplasm progression [Unknown]
  - Fatigue [Unknown]
